FAERS Safety Report 7404474-3 (Version None)
Quarter: 2011Q2

REPORT INFORMATION
  Report Type: 
  Country: None (occurrence: None)
  Receive Date: 20110408
  Receipt Date: 20110401
  Transmission Date: 20111010
  Serious: Yes (Other)
  Sender: FDA-Public Use
  Company Number: US-RB-024820-11

PATIENT
  Age: 49 Year
  Sex: Female

DRUGS (1)
  1. SUBOXONE [Suspect]
     Indication: PRODUCT USED FOR UNKNOWN INDICATION
     Dosage: SUBOXONE SUBLINGUAL FILM;TAKING 4 MG DAILY
     Route: 065

REACTIONS (8)
  - SOMNOLENCE [None]
  - CONVULSION [None]
  - DISTURBANCE IN ATTENTION [None]
  - NERVOUSNESS [None]
  - WEIGHT DECREASED [None]
  - IRRITABILITY [None]
  - DECREASED APPETITE [None]
  - HEADACHE [None]
